FAERS Safety Report 4820030-5 (Version None)
Quarter: 2005Q4

REPORT INFORMATION
  Report Type: 
  Country: None (occurrence: None)
  Receive Date: 20051031
  Receipt Date: 20050811
  Transmission Date: 20060501
  Serious: No
  Sender: FDA-Public Use
  Company Number: 2005PV001161

PATIENT
  Age: 67 Year
  Sex: Female
  Weight: 95.2554 kg

DRUGS (14)
  1. SYMLIN [Suspect]
     Indication: DIABETES MELLITUS NON-INSULIN-DEPENDENT
     Dosage: 120 MCG;TID;SC
     Route: 058
     Dates: start: 20050801
  2. DETROL [Concomitant]
  3. NOVOLOG [Concomitant]
  4. LANTUS [Concomitant]
  5. TOPROL-XL [Concomitant]
  6. NORVASC [Concomitant]
  7. QUINAPRIL [Concomitant]
  8. DIOVAN [Concomitant]
  9. NIASPAN [Concomitant]
  10. ZETIA [Concomitant]
  11. ZOCOR [Concomitant]
  12. FOSAMAX [Concomitant]
  13. COMBIPATCH [Concomitant]
  14. CALTRATE [Concomitant]

REACTIONS (1)
  - THERAPEUTIC RESPONSE UNEXPECTED [None]
